FAERS Safety Report 5716960-2 (Version None)
Quarter: 2008Q2

REPORT INFORMATION
  Report Type: 
  Country: None (occurrence: None)
  Receive Date: 20080424
  Receipt Date: 20080414
  Transmission Date: 20081010
  Serious: Yes (Disabling)
  Sender: FDA-Public Use
  Company Number: US-MERCK-0712USA02113

PATIENT
  Age: 49 Year
  Sex: Female

DRUGS (2)
  1. FOSAMAX [Suspect]
     Indication: OSTEOPOROSIS
     Route: 048
     Dates: start: 19960101, end: 19970101
  2. PREMARIN [Concomitant]
     Indication: OSTEOPOROSIS
     Route: 065
     Dates: start: 19840101

REACTIONS (7)
  - ANXIETY [None]
  - DEPRESSION [None]
  - FISTULA [None]
  - HEPATITIS C [None]
  - INTERVERTEBRAL DISC DEGENERATION [None]
  - OSTEONECROSIS [None]
  - TEMPOROMANDIBULAR JOINT SYNDROME [None]
